FAERS Safety Report 5259337-9 (Version None)
Quarter: 2007Q1

REPORT INFORMATION
  Report Type: 
  Country: None (occurrence: None)
  Receive Date: 20070302
  Receipt Date: 20070221
  Transmission Date: 20070707
  Serious: Yes (Disabling)
  Sender: FDA-Public Use
  Company Number: 2007-154859-NL

PATIENT
  Age: 11 Month
  Sex: Female

DRUGS (9)
  1. VECURONIUM BROMIDE [Suspect]
     Indication: RESPIRATORY THERAPY
     Dosage: 19.2 MG/24 MG
     Route: 042
     Dates: start: 20040625, end: 20050127
  2. VECURONIUM BROMIDE [Suspect]
     Indication: RESPIRATORY THERAPY
     Dosage: 19.2 MG/24 MG
     Route: 042
     Dates: start: 20040514, end: 20050530
  3. PANCURONIUM BROMIDE [Concomitant]
  4. MIDAZOLAM HCL [Concomitant]
  5. FLOMOXEF SODIUM [Concomitant]
  6. CLINDAMYCIN HCL [Concomitant]
  7. LASIX [Concomitant]
  8. POTASSIUM CANRENOATE [Concomitant]
  9. MIDAZOLAM HYDROCHLORIDE [Concomitant]

REACTIONS (3)
  - DEAFNESS [None]
  - MULTI-ORGAN FAILURE [None]
  - PULMONARY HYPERTENSION [None]
